FAERS Safety Report 12650059 (Version 1)
Quarter: 2016Q3

REPORT INFORMATION
  Report Type: Spontaneous
  Country: US (occurrence: US)
  Receive Date: 20160813
  Receipt Date: 20160813
  Transmission Date: 20161109
  Serious: No
  Sender: FDA-Public Use
  Company Number: US-ASTRAZENECA-2016SE75947

PATIENT
  Age: 4 Month
  Sex: Male
  Weight: 8.2 kg

DRUGS (5)
  1. SIMILAC [Concomitant]
     Active Substance: DEXTROSE\WATER
     Indication: EAR INFECTION
     Route: 048
     Dates: start: 20160705
  2. PULMICORT RESPULES [Suspect]
     Active Substance: BUDESONIDE
     Indication: WHEEZING
     Route: 055
     Dates: start: 201603
  3. ALBUTEROL. [Concomitant]
     Active Substance: ALBUTEROL
     Indication: DYSPNOEA
     Route: 055
     Dates: start: 201603
  4. ANTIBIOTICS [Concomitant]
     Active Substance: UNSPECIFIED INGREDIENT
     Indication: EAR INFECTION
     Route: 048
     Dates: start: 20160705
  5. PULMICORT RESPULES [Suspect]
     Active Substance: BUDESONIDE
     Indication: DYSPNOEA
     Route: 055
     Dates: start: 201603

REACTIONS (10)
  - Ear infection [Unknown]
  - Respiratory tract congestion [Unknown]
  - Wheezing [Unknown]
  - Rash [Unknown]
  - Drug administered to patient of inappropriate age [Unknown]
  - Sinusitis [Unknown]
  - Off label use [Unknown]
  - Tooth discolouration [Unknown]
  - Pruritus [Unknown]
  - Medication error [Unknown]

NARRATIVE: CASE EVENT DATE: 201603
